FAERS Safety Report 7233151-7 (Version None)
Quarter: 2011Q1

REPORT INFORMATION
  Report Type: 
  Country: None (occurrence: None)
  Receive Date: 20110119
  Receipt Date: 20080625
  Transmission Date: 20110831
  Serious: Yes (Other)
  Sender: FDA-Public Use
  Company Number: PHHY2008MX37293

PATIENT
  Sex: Male

DRUGS (1)
  1. TEGRETOL [Suspect]
     Indication: CONVULSION PROPHYLAXIS
     Dosage: 2 DF, QD
     Route: 048
     Dates: start: 20080314, end: 20080815

REACTIONS (2)
  - HEPATIC PAIN [None]
  - HEPATITIS [None]
